FAERS Safety Report 15189817 (Version 2)
Quarter: 2018Q4

REPORT INFORMATION
  Report Type: Report from Study
  Country: CN (occurrence: CN)
  Receive Date: 20180724
  Receipt Date: 20181102
  Transmission Date: 20190204
  Serious: Yes (Other)
  Sender: FDA-Public Use
  Company Number: CN-ASTELLAS-2018US032677

PATIENT
  Age: 68 Year
  Sex: Female
  Weight: 65 kg

DRUGS (1)
  1. ERLOTINIB [Suspect]
     Active Substance: ERLOTINIB
     Indication: NON-SMALL CELL LUNG CANCER
     Route: 048
     Dates: start: 20170918

REACTIONS (11)
  - Rash [Recovered/Resolved]
  - Drug resistance [Unknown]
  - Fracture [Unknown]
  - Feeling hot [Recovered/Resolved]
  - Pruritus [Recovered/Resolved]
  - Nasal dryness [Recovered/Resolved]
  - Nasopharyngitis [Unknown]
  - Asthenia [Recovered/Resolved]
  - Nasal pruritus [Recovered/Resolved]
  - Rhinitis [Recovered/Resolved]
  - Dry skin [Recovered/Resolved]

NARRATIVE: CASE EVENT DATE: 20170922
